FAERS Safety Report 7679304-5 (Version None)
Quarter: 2011Q3

REPORT INFORMATION
  Report Type: 
  Country: None (occurrence: None)
  Receive Date: 20110809
  Receipt Date: 20110725
  Transmission Date: 20111222
  Serious: Yes (Hospitalization, Other)
  Sender: FDA-Public Use
  Company Number: 2010SP053375

PATIENT
  Age: 22 Year
  Sex: Female
  Weight: 99.7913 kg

DRUGS (1)
  1. NUVARING [Suspect]
     Indication: CONTRACEPTION
     Dates: start: 20051001, end: 20100701

REACTIONS (10)
  - PULMONARY EMBOLISM [None]
  - PELVIC ADHESIONS [None]
  - WOUND INFECTION STAPHYLOCOCCAL [None]
  - ADENOMYOSIS [None]
  - CHOLELITHIASIS [None]
  - CELLULITIS [None]
  - DEEP VEIN THROMBOSIS [None]
  - CHOLECYSTITIS CHRONIC [None]
  - DRUG HYPERSENSITIVITY [None]
  - STAPHYLOCOCCAL INFECTION [None]
